FAERS Safety Report 24944402 (Version 5)
Quarter: 2025Q2

REPORT INFORMATION
  Report Type: Report from Study
  Country: US (occurrence: US)
  Receive Date: 20250208
  Receipt Date: 20250516
  Transmission Date: 20250717
  Serious: Yes (Other)
  Sender: ABBVIE
  Company Number: US-ABBVIE-6082488

PATIENT
  Age: 55 Year
  Sex: Male
  Weight: 92.98 kg

DRUGS (1)
  1. RINVOQ [Suspect]
     Active Substance: UPADACITINIB
     Indication: Dermatitis atopic
     Route: 048
     Dates: start: 20220816

REACTIONS (8)
  - Arthritis [Recovering/Resolving]
  - Blood pressure fluctuation [Not Recovered/Not Resolved]
  - Neck pain [Recovered/Resolved]
  - Dermatitis atopic [Unknown]
  - Neck injury [Unknown]
  - Rash papular [Not Recovered/Not Resolved]
  - Drug ineffective [Not Recovered/Not Resolved]
  - Weight increased [Unknown]

NARRATIVE: CASE EVENT DATE: 20241201
